FAERS Safety Report 20949224 (Version 2)
Quarter: 2022Q2

REPORT INFORMATION
  Report Type: Spontaneous
  Country: US (occurrence: US)
  Receive Date: 20220613
  Receipt Date: 20220615
  Transmission Date: 20220720
  Serious: No
  Sender: FDA-Public Use
  Company Number: US-NOVARTISTESTPH-NVSC2022US134821

PATIENT
  Sex: Male

DRUGS (1)
  1. TEGRETOL [Suspect]
     Active Substance: CARBAMAZEPINE
     Indication: Epilepsy
     Dosage: UNK
     Route: 065

REACTIONS (6)
  - Haemorrhoids [Unknown]
  - Anal fissure [Unknown]
  - Sexual dysfunction [Unknown]
  - Memory impairment [Unknown]
  - Constipation [Unknown]
  - Tinnitus [Unknown]
